FAERS Safety Report 7983542-1 (Version None)
Quarter: 2011Q4

REPORT INFORMATION
  Report Type: 
  Country: None (occurrence: None)
  Receive Date: 20111215
  Receipt Date: 20111208
  Transmission Date: 20120403
  Serious: Yes (Death, Life-Threatening, Hospitalization)
  Sender: FDA-Public Use
  Company Number: SE-ASTRAZENECA-2011SE74281

PATIENT
  Age: 56 Year
  Sex: Male

DRUGS (4)
  1. METOPROLOL ACTAVIS [Suspect]
  2. SIMPONI [Suspect]
  3. CRESTOR [Suspect]
     Route: 048
     Dates: start: 20111003, end: 20111029
  4. NAPROXEN [Suspect]

REACTIONS (2)
  - DEATH [None]
  - CHOLECYSTITIS [None]
